FAERS Safety Report 18677533 (Version 5)
Quarter: 2021Q1

REPORT INFORMATION
  Report Type: Other
  Country: GB (occurrence: GB)
  Receive Date: 20201229
  Receipt Date: 20210212
  Transmission Date: 20210419
  Serious: Yes (Other)
  Sender: FDA-Public Use
  Company Number: GB-GW PHARMA-202012GBGW04506

PATIENT

DRUGS (14)
  1. EPIDYOLEX [Interacting]
     Active Substance: CANNABIDIOL
     Dosage: 11.36 MG/KG/DAY, 500 MILLIGRAM
     Route: 048
     Dates: start: 2020, end: 20201202
  2. PHENOBARBITAL. [Concomitant]
     Active Substance: PHENOBARBITAL
     Indication: PRODUCT USED FOR UNKNOWN INDICATION
     Dosage: UNK
     Route: 065
  3. FLUOXETINE [Interacting]
     Active Substance: FLUOXETINE HYDROCHLORIDE
     Indication: PRODUCT USED FOR UNKNOWN INDICATION
     Dosage: 36 MILLIGRAM, QD
     Route: 065
  4. COLECALCIFEROL [Concomitant]
     Active Substance: CHOLECALCIFEROL
     Indication: PRODUCT USED FOR UNKNOWN INDICATION
     Dosage: UNK
     Route: 065
  5. CLOBAZAM. [Concomitant]
     Active Substance: CLOBAZAM
     Indication: PRODUCT USED FOR UNKNOWN INDICATION
     Dosage: 4 MILLIGRAM, QD
     Route: 065
  6. CLOBAZAM. [Concomitant]
     Active Substance: CLOBAZAM
     Dosage: 8 MILLIGRAM, QD
     Route: 065
  7. EPIDYOLEX [Suspect]
     Active Substance: CANNABIDIOL
     Indication: EPILEPSY
     Dosage: 4 MILLIGRAM/KILOGRAM
     Route: 048
     Dates: start: 20200902, end: 20200916
  8. EPIDYOLEX [Interacting]
     Active Substance: CANNABIDIOL
     Dosage: 6 MILLIGRAM/KILOGRAM
     Route: 048
     Dates: start: 20200916, end: 20200930
  9. EPIDYOLEX [Interacting]
     Active Substance: CANNABIDIOL
     Dosage: 8 MILLIGRAM/KILOGRAM
     Route: 048
     Dates: start: 20200930, end: 20201014
  10. CHLORAL HYDRATE [Concomitant]
     Active Substance: CHLORAL HYDRATE
     Indication: PRODUCT USED FOR UNKNOWN INDICATION
     Dosage: UNK
     Route: 065
  11. TOPIRAMATE. [Concomitant]
     Active Substance: TOPIRAMATE
     Indication: PRODUCT USED FOR UNKNOWN INDICATION
     Dosage: UNK
     Route: 065
  12. ETHOSUXIMIDE. [Concomitant]
     Active Substance: ETHOSUXIMIDE
     Indication: PRODUCT USED FOR UNKNOWN INDICATION
     Dosage: UNK
     Route: 065
  13. EPIDYOLEX [Interacting]
     Active Substance: CANNABIDIOL
     Dosage: 9.09 MG/KG/DAY, 400 MILLIGRAM, QD
     Route: 048
     Dates: start: 20201014, end: 2020
  14. LANSOPRAZOLE. [Concomitant]
     Active Substance: LANSOPRAZOLE
     Indication: PRODUCT USED FOR UNKNOWN INDICATION
     Dosage: UNK
     Route: 065

REACTIONS (6)
  - Weight decreased [Recovered/Resolved]
  - Social avoidant behaviour [Unknown]
  - Decreased appetite [Recovered/Resolved]
  - Drug interaction [Unknown]
  - Diarrhoea [Recovered/Resolved]
  - Somnolence [Recovered/Resolved]

NARRATIVE: CASE EVENT DATE: 2020
